FAERS Safety Report 4804332-4 (Version None)
Quarter: 2005Q4

REPORT INFORMATION
  Report Type: 
  Country: None (occurrence: None)
  Receive Date: 20051017
  Receipt Date: 20051006
  Transmission Date: 20060501
  Serious: Yes (Hospitalization)
  Sender: FDA-Public Use
  Company Number: 2005139527

PATIENT
  Age: 29 Year
  Sex: Female

DRUGS (1)
  1. FRAGMIN [Suspect]
     Indication: ILL-DEFINED DISORDER

REACTIONS (2)
  - DRUG EXPOSURE DURING PREGNANCY [None]
  - PLACENTA PRAEVIA HAEMORRHAGE [None]
